FAERS Safety Report 15535132 (Version 3)
Quarter: 2020Q3

REPORT INFORMATION
  Report Type: Spontaneous
  Country: IN (occurrence: IN)
  Receive Date: 20181022
  Receipt Date: 20200703
  Transmission Date: 20201102
  Serious: Yes (Other)
  Sender: FDA-Public Use
  Company Number: IN-BRISTOL-MYERS SQUIBB COMPANY-BMS-2018-095773

PATIENT
  Age: 52 Year
  Sex: Female

DRUGS (1)
  1. NIVOLUMAB [Suspect]
     Active Substance: NIVOLUMAB
     Indication: ANAPLASTIC THYROID CANCER
     Dosage: 3 MG/KG, UNK
     Route: 042

REACTIONS (2)
  - Intentional product use issue [Unknown]
  - Ejection fraction decreased [Recovering/Resolving]
